FAERS Safety Report 5277481-7 (Version None)
Quarter: 2007Q1

REPORT INFORMATION
  Report Type: 
  Country: None (occurrence: None)
  Receive Date: 20070327
  Receipt Date: 20070323
  Transmission Date: 20070707
  Serious: Yes (Death, Hospitalization)
  Sender: FDA-Public Use
  Company Number: KR-GILEAD-2007-0011699

PATIENT
  Age: 63 Year
  Sex: Male

DRUGS (5)
  1. ADEFOVIR DIPIVOXIL [Suspect]
     Indication: HEPATITIS B
     Route: 048
     Dates: start: 20051201, end: 20060302
  2. LAMIVUDINE [Concomitant]
     Dates: start: 20010425, end: 20060116
  3. SPIRONOLACTONE [Concomitant]
     Dates: start: 20000818, end: 20060218
  4. TAUROURSODESOXYCHOLIC ACID [Concomitant]
     Dates: start: 20020215, end: 20060116
  5. LACTULOSE [Concomitant]

REACTIONS (6)
  - BLEEDING VARICOSE VEIN [None]
  - DYSPNOEA [None]
  - GASTRIC ULCER HAEMORRHAGE [None]
  - HEPATIC CIRRHOSIS [None]
  - HEPATIC FAILURE [None]
  - MELAENA [None]
